FAERS Safety Report 8504962-2 (Version None)
Quarter: 2012Q3

REPORT INFORMATION
  Report Type: 
  Country: None (occurrence: None)
  Receive Date: 20120702
  Receipt Date: 20120528
  Transmission Date: 20120928
  Serious: Yes (Hospitalization)
  Sender: FDA-Public Use
  Company Number: AG-2012-0465

PATIENT
  Age: 54 Year
  Sex: Female
  Weight: 99.8 kg

DRUGS (9)
  1. OFATUMUMAB (OFATUMUMAB) (UNKNOWN) [Suspect]
     Indication: CHRONIC LYMPHOCYTIC LEUKAEMIA
     Dosage: 1000MG MONTHLY (1000 MILLIGRAM,1) INTRAVENOUS (NOT OTHERWISE SPECIFIED)
     Route: 042
     Dates: start: 20120105
  2. CHLORPHENIRAMINE MALEATE [Concomitant]
  3. METOCLOPRAMIDE [Concomitant]
  4. CHLORAMBUCIL (CHLORAMBUCIL) (UNKNOWN) [Suspect]
     Indication: CHRONIC LYMPHOCYTIC LEUKAEMIA
     Dosage: 20 MG ER DAY (20 MILLIGRAM,1) ORAL
     Route: 048
     Dates: start: 20120106
  5. ACETAMINOPHEN [Concomitant]
  6. ACYCLOVIR SODIUM [Concomitant]
  7. PREDNISOLONE [Suspect]
     Indication: PRODUCT USED FOR UNKNOWN INDICATION
     Dosage: 20MG PER DAY (20 MILLIGRAM,1) ORAL
     Route: 048
     Dates: start: 20120104
  8. G-CSF (GRANULOCYTE COLONY STIMULATING FACTOR) [Concomitant]
  9. ALLOPURINOL [Concomitant]

REACTIONS (2)
  - PYREXIA [None]
  - MALAISE [None]
